FAERS Safety Report 26172596 (Version 1)
Quarter: 2025Q4

REPORT INFORMATION
  Report Type: Spontaneous
  Country: AU (occurrence: AU)
  Receive Date: 20251218
  Receipt Date: 20251218
  Transmission Date: 20260117
  Serious: Yes (Other)
  Sender: ACCORD
  Company Number: None

PATIENT
  Age: 24 Year
  Sex: Male

DRUGS (9)
  1. ESCITALOPRAM OXALATE [Suspect]
     Active Substance: ESCITALOPRAM OXALATE
     Indication: Product used for unknown indication
  2. DEXMEDETOMIDINE HYDROCHLORIDE [Suspect]
     Active Substance: DEXMEDETOMIDINE HYDROCHLORIDE
     Indication: Product used for unknown indication
  3. MIDAZOLAM [Suspect]
     Active Substance: MIDAZOLAM
     Indication: Product used for unknown indication
  4. BACLOFEN [Suspect]
     Active Substance: BACLOFEN
     Indication: Product used for unknown indication
  5. HALOPERIDOL [Suspect]
     Active Substance: HALOPERIDOL
     Indication: Product used for unknown indication
  6. EPINEPHRINE [Concomitant]
     Active Substance: EPINEPHRINE
  7. ATROPINE [Concomitant]
     Active Substance: ATROPINE
  8. FENTANYL [Concomitant]
     Active Substance: FENTANYL
  9. PROPOFOL [Concomitant]
     Active Substance: PROPOFOL

REACTIONS (11)
  - Agitation [Unknown]
  - Bradyarrhythmia [Unknown]
  - Cardiac arrest [Unknown]
  - Cardiac output decreased [Unknown]
  - Delirium [Unknown]
  - Drug withdrawal syndrome [Unknown]
  - Mental status changes [Unknown]
  - Intentional overdose [Unknown]
  - Off label use [Unknown]
  - Therapy non-responder [Unknown]
  - Toxicity to various agents [Unknown]
